FAERS Safety Report 20129121 (Version 1)
Quarter: 2021Q4

REPORT INFORMATION
  Report Type: Spontaneous
  Country: CN (occurrence: None)
  Receive Date: 20211130
  Receipt Date: 20211130
  Transmission Date: 20220303
  Serious: Yes (Other)
  Sender: FDA-Public Use
  Company Number: CN-ROCHE-2965104

PATIENT
  Age: 48 Year
  Sex: Female

DRUGS (23)
  1. MABTHERA [Suspect]
     Active Substance: RITUXIMAB
     Indication: Follicular lymphoma stage III
     Dosage: ON 17 MAR 2017, 10 APR 2017, 02 MAY 2017, 29 MAY 2017, 10 JUN?2017, 13 JUL 2017 AND 05 AUG 2017, R-C
     Route: 065
     Dates: start: 20170223
  2. GAZYVA [Suspect]
     Active Substance: OBINUTUZUMAB
     Indication: Follicular lymphoma stage III
     Dosage: G-GDP REGIMEN
     Route: 042
     Dates: start: 20211020
  3. GAZYVA [Suspect]
     Active Substance: OBINUTUZUMAB
     Dosage: OBINUTUZUMAB + BENDAMUSTINE REGIMEN
     Route: 042
     Dates: start: 20211120
  4. CYCLOPHOSPHAMIDE [Concomitant]
     Active Substance: CYCLOPHOSPHAMIDE
  5. DOXORUBICIN [Concomitant]
     Active Substance: DOXORUBICIN
  6. VINCRISTINE [Concomitant]
     Active Substance: VINCRISTINE
  7. PREDNISONE [Concomitant]
     Active Substance: PREDNISONE
  8. ETOPOSIDE [Concomitant]
     Active Substance: ETOPOSIDE
     Dosage: DICE REGIMEN
     Dates: start: 20181219
  9. DEXAMETHASONE [Concomitant]
     Active Substance: DEXAMETHASONE
     Dosage: DICE REGIMEN
     Dates: start: 20181219
  10. DEXAMETHASONE [Concomitant]
     Active Substance: DEXAMETHASONE
     Dosage: G-GDP REGIMEN
     Dates: start: 20211020
  11. IFOSFAMIDE [Concomitant]
     Active Substance: IFOSFAMIDE
     Dosage: DICE REGIMEN
     Dates: start: 20181219
  12. CISPLATIN [Concomitant]
     Active Substance: CISPLATIN
     Dosage: DICE REGIMEN
     Dates: start: 20181219
  13. CISPLATIN [Concomitant]
     Active Substance: CISPLATIN
     Dosage: G-GDP REGIMEN
     Dates: start: 20211020
  14. GEMCITABINE [Concomitant]
     Active Substance: GEMCITABINE
     Dosage: GEMOX REGIMEN
     Dates: start: 20190123, end: 20190424
  15. GEMCITABINE [Concomitant]
     Active Substance: GEMCITABINE
     Dosage: GEMOX REGIMEN
     Dates: start: 20200109
  16. GEMCITABINE [Concomitant]
     Active Substance: GEMCITABINE
     Dosage: GEMOX REGIMEN
     Dates: start: 20210401, end: 20210618
  17. GEMCITABINE [Concomitant]
     Active Substance: GEMCITABINE
     Dosage: GEMOX REGIMEN
     Dates: start: 20210927
  18. GEMCITABINE [Concomitant]
     Active Substance: GEMCITABINE
     Dosage: G-GDP REGIMEN
     Dates: start: 20211020
  19. OXALIPLATIN [Concomitant]
     Active Substance: OXALIPLATIN
     Dosage: GEMOX REGIMEN
     Dates: start: 20190123, end: 20190424
  20. OXALIPLATIN [Concomitant]
     Active Substance: OXALIPLATIN
     Dosage: GEMOX REGIMEN
     Dates: start: 20200109
  21. OXALIPLATIN [Concomitant]
     Active Substance: OXALIPLATIN
     Dosage: GEMOX REGIMEN
     Dates: start: 20210401, end: 20210618
  22. OXALIPLATIN [Concomitant]
     Active Substance: OXALIPLATIN
     Dosage: GEMOX REGIMEN
     Dates: start: 20210927
  23. BENDAMUSTINE [Concomitant]
     Active Substance: BENDAMUSTINE
     Dosage: OBINUTUZUMAB + BENDAMUSTINE REGIMEN
     Dates: start: 20211120

REACTIONS (1)
  - Myelosuppression [Unknown]
